FAERS Safety Report 8310762-9 (Version None)
Quarter: 2012Q2

REPORT INFORMATION
  Report Type: 
  Country: None (occurrence: None)
  Receive Date: 20120425
  Receipt Date: 20120420
  Transmission Date: 20120825
  Serious: Yes (Other)
  Sender: FDA-Public Use
  Company Number: US-ROCHE-1061666

PATIENT
  Sex: Female

DRUGS (3)
  1. ACCUTANE [Suspect]
     Indication: PRODUCT USED FOR UNKNOWN INDICATION
     Route: 065
     Dates: start: 20020101, end: 20021001
  2. ACCUTANE [Suspect]
     Route: 065
     Dates: start: 20040210, end: 20040731
  3. ACCUTANE [Suspect]
     Route: 065
     Dates: start: 20030320, end: 20030821

REACTIONS (1)
  - INJURY [None]
